FAERS Safety Report 7139297-6 (Version None)
Quarter: 2010Q4

REPORT INFORMATION
  Report Type: 
  Country: None (occurrence: None)
  Receive Date: 20101206
  Receipt Date: 20101004
  Transmission Date: 20110411
  Serious: No
  Sender: FDA-Public Use
  Company Number: A0885981A

PATIENT
  Sex: Female

DRUGS (2)
  1. LAMICTAL [Suspect]
     Route: 065
     Dates: start: 20100901, end: 20100101
  2. KEPPRA [Concomitant]
     Dosage: 500MG UNKNOWN

REACTIONS (1)
  - HEADACHE [None]
